FAERS Safety Report 17030585 (Version 1)
Quarter: 2019Q4

REPORT INFORMATION
  Report Type: Spontaneous
  Country: US (occurrence: US)
  Receive Date: 20191114
  Receipt Date: 20191114
  Transmission Date: 20200122
  Serious: No
  Sender: FDA-Public Use
  Company Number: US-ALLERGAN-1850533US

PATIENT
  Age: 83 Year
  Sex: Female

DRUGS (7)
  1. LEVOBUNOLOL [Concomitant]
     Active Substance: LEVOBUNOLOL
     Dosage: UNK
  2. XALATAN [Concomitant]
     Active Substance: LATANOPROST
     Dosage: UNK
  3. BLOOD PRESSURE MED UNSPECIFIED [Concomitant]
     Indication: BLOOD PRESSURE MEASUREMENT
     Dosage: UNK
     Route: 048
  4. AREDS2 OTC [Concomitant]
     Dosage: UNK
     Route: 047
  5. COMBIGAN [Suspect]
     Active Substance: BRIMONIDINE TARTRATE\TIMOLOL MALEATE
     Indication: MACULAR DEGENERATION
     Dosage: 2 GTT, BID
     Route: 047
     Dates: start: 20180923
  6. TRAVATAN [Concomitant]
     Active Substance: TRAVOPROST
     Indication: MACULAR DEGENERATION
     Dosage: UNK
     Route: 047
  7. OSTEOPOROSIS MED UNSPECIFIED [Concomitant]
     Indication: OSTEOPOROSIS
     Dosage: UNK
     Route: 048

REACTIONS (5)
  - Accidental exposure to product [Unknown]
  - Off label use [Unknown]
  - Product container issue [Unknown]
  - Incorrect dose administered [Unknown]
  - Product dose omission [Unknown]

NARRATIVE: CASE EVENT DATE: 2018
